FAERS Safety Report 8395295-6 (Version None)
Quarter: 2012Q2

REPORT INFORMATION
  Report Type: 
  Country: None (occurrence: None)
  Receive Date: 20120524
  Receipt Date: 20110831
  Transmission Date: 20120825
  Serious: Yes (Other)
  Sender: FDA-Public Use
  Company Number: ADE12-054

PATIENT

DRUGS (1)
  1. HEPARIN SODIUM INJECTION [Suspect]
     Dosage: INTRAVENOUS
     Route: 042

REACTIONS (1)
  - DRUG EFFECT DECREASED [None]
